FAERS Safety Report 6013270-3 (Version None)
Quarter: 2008Q4

REPORT INFORMATION
  Report Type: 
  Country: None (occurrence: None)
  Receive Date: 20081219
  Receipt Date: 20081213
  Transmission Date: 20090506
  Serious: Yes (Hospitalization)
  Sender: FDA-Public Use
  Company Number: US-AVENTIS-200818438US

PATIENT
  Sex: Male

DRUGS (1)
  1. LANTUS [Suspect]
     Dosage: DOSE: UNK
     Route: 058

REACTIONS (7)
  - ABASIA [None]
  - BACK PAIN [None]
  - FATIGUE [None]
  - LYMPHADENITIS [None]
  - MYALGIA [None]
  - PYREXIA [None]
  - SERUM SICKNESS [None]
